FAERS Safety Report 9093185 (Version 3)
Quarter: 2013Q1

REPORT INFORMATION
  Report Type: Spontaneous
  Country: JP (occurrence: JP)
  Receive Date: 20130218
  Receipt Date: 20130301
  Transmission Date: 20140127
  Serious: Yes (Hospitalization)
  Sender: FDA-Public Use
  Company Number: JP-009507513-1302JPN004461

PATIENT
  Age: 20 Year
  Sex: Male

DRUGS (6)
  1. ISENTRESS TABLETS 400MG [Suspect]
     Indication: HIV INFECTION
     Dosage: 400 MG, BID
     Route: 048
  2. TRUVADA [Suspect]
     Indication: HIV INFECTION
     Dosage: DAILY DOSE UNKNOWN
     Route: 048
  3. SULFAMETHOXAZOLE (+) TRIMETHOPRIM [Concomitant]
     Indication: PNEUMOCYSTIS JIROVECII PNEUMONIA
     Dosage: DAILY DOSE UNKNOWN
     Route: 065
  4. PREDNISOLONE [Concomitant]
     Indication: PNEUMOCYSTIS JIROVECII PNEUMONIA
     Dosage: DAILY DOSE UNKNOWN
     Route: 065
  5. ACYCLOVIR [Concomitant]
     Indication: HERPES ZOSTER OTICUS
     Dosage: 10 MG/KG, TID
     Route: 065
  6. PREDNISOLONE [Concomitant]
     Indication: HERPES ZOSTER OTICUS
     Dosage: 1 MG/KG, UNK
     Route: 065

REACTIONS (1)
  - Immune reconstitution inflammatory syndrome [Unknown]
